FAERS Safety Report 12870141 (Version 6)
Quarter: 2017Q1

REPORT INFORMATION
  Report Type: Spontaneous
  Country: US (occurrence: US)
  Receive Date: 20161021
  Receipt Date: 20170111
  Transmission Date: 20170428
  Serious: Yes (Hospitalization, Other)
  Sender: FDA-Public Use
  Company Number: US-PFIZER INC-2016478728

PATIENT
  Age: 60 Year
  Sex: Female
  Weight: 115.65 kg

DRUGS (4)
  1. IBRANCE [Suspect]
     Active Substance: PALBOCICLIB
     Indication: BREAST CANCER METASTATIC
     Dosage: 125 MG, CYCLIC (DAYS 1-21 Q 28 DAYS)
     Route: 048
     Dates: start: 20160928
  2. LETROZOLE. [Concomitant]
     Active Substance: LETROZOLE
     Dosage: UNK
  3. IBRANCE [Suspect]
     Active Substance: PALBOCICLIB
     Dosage: 125 MG, CYCLIC (14 DAYS ON AND 14 DAYS OFF )
     Route: 048
  4. IBRANCE [Suspect]
     Active Substance: PALBOCICLIB
     Dosage: 125 MG, CYCLIC (DAYS 1-21 Q28 DAYS)
     Route: 048
     Dates: start: 20160928

REACTIONS (16)
  - Hot flush [Unknown]
  - Abdominal pain [Unknown]
  - Headache [Unknown]
  - Constipation [Unknown]
  - Nasopharyngitis [Unknown]
  - Postoperative wound infection [Unknown]
  - Fatigue [Unknown]
  - Arthralgia [Unknown]
  - Weight decreased [Unknown]
  - Abdominal discomfort [Unknown]
  - Blood count abnormal [Unknown]
  - Nausea [Unknown]
  - Peripheral swelling [Unknown]
  - Wound abscess [Unknown]
  - Feeling cold [Unknown]
  - Diarrhoea [Unknown]
